FAERS Safety Report 7421025-8 (Version None)
Quarter: 2011Q2

REPORT INFORMATION
  Report Type: 
  Country: None (occurrence: None)
  Receive Date: 20110418
  Receipt Date: 20110406
  Transmission Date: 20111010
  Serious: Yes (Hospitalization)
  Sender: FDA-Public Use
  Company Number: JP-ROCHE-770445

PATIENT
  Age: 35 Year
  Sex: Male

DRUGS (3)
  1. TAMIFLU [Suspect]
     Indication: INFLUENZA
     Route: 048
     Dates: start: 20110311, end: 20110311
  2. LOXONIN [Suspect]
     Indication: UPPER RESPIRATORY TRACT INFECTION
     Dosage: PERORAL AGENT. DRUG REPORTED: LOXOPROFEN SODIUM HYDRATE
     Route: 048
     Dates: start: 20110310, end: 20110311
  3. RIKAVARIN [Suspect]
     Dosage: PER ORAL AGENT
     Route: 048
     Dates: start: 20110310

REACTIONS (1)
  - DRUG ERUPTION [None]
